FAERS Safety Report 7079374-1 (Version None)
Quarter: 2010Q4

REPORT INFORMATION
  Report Type: 
  Country: None (occurrence: None)
  Receive Date: 20101102
  Receipt Date: 20101022
  Transmission Date: 20110411
  Serious: Yes (Other)
  Sender: FDA-Public Use
  Company Number: US-JNJFOC-20101005776

PATIENT
  Age: 55 Year
  Sex: Female
  Weight: 62.14 kg

DRUGS (8)
  1. TYLENOL 8 HOUR MUSCLES + PAIN [Suspect]
     Indication: SINUS HEADACHE
     Dosage: 1300MG 1-2 TIMES A DAY
     Route: 048
  2. TYLENOL 8 HOUR MUSCLES + PAIN [Suspect]
     Indication: EAR PAIN
     Dosage: 1300MG 1-2 TIMES A DAY
     Route: 048
  3. OMEPRAZOLE [Concomitant]
     Indication: GASTROOESOPHAGEAL REFLUX DISEASE
  4. METOPROLOL [Concomitant]
     Indication: HYPERTENSION
  5. LISINOPRIL [Concomitant]
     Indication: HYPERTENSION
  6. HYDROCHLOROTHIAZIDE [Concomitant]
     Indication: HYPERTENSION
  7. ZOLOFT [Concomitant]
     Indication: ANXIETY
  8. XANAX [Concomitant]
     Indication: ANXIETY

REACTIONS (11)
  - ABDOMINAL DISTENSION [None]
  - BLOOD PRESSURE DECREASED [None]
  - BODY TEMPERATURE INCREASED [None]
  - DIARRHOEA [None]
  - FATIGUE [None]
  - FLATULENCE [None]
  - HEADACHE [None]
  - PRODUCT QUALITY ISSUE [None]
  - RASH [None]
  - RECTAL HAEMORRHAGE [None]
  - VOMITING [None]
